FAERS Safety Report 15340684 (Version 1)
Quarter: 2018Q4

REPORT INFORMATION
  Report Type: Spontaneous
  Country: US (occurrence: US)
  Receive Date: 20180831
  Receipt Date: 20180831
  Transmission Date: 20190204
  Serious: Yes (Other)
  Sender: FDA-Public Use
  Company Number: US-TEVA-2018-US-949248

PATIENT
  Sex: Female

DRUGS (1)
  1. METHOTINJ [Suspect]
     Active Substance: METHOTREXATE
     Indication: SPINAL OSTEOARTHRITIS
     Dosage: FORM STRENGTH: 25 MG/ML, 50
     Route: 065
     Dates: start: 20180527

REACTIONS (5)
  - Erythema [Unknown]
  - Skin sensitisation [Unknown]
  - Skin turgor decreased [Unknown]
  - Androgen deficiency [Unknown]
  - Oestrogen deficiency [Unknown]

NARRATIVE: CASE EVENT DATE: 201806
